FAERS Safety Report 8249219 (Version 2)
Quarter: 2015Q1

REPORT INFORMATION
  Report Type: Spontaneous
  Country: US (occurrence: None)
  Receive Date: 20111114
  Receipt Date: 20150226
  Transmission Date: 20150721
  Serious: Yes (Other)
  Sender: FDA-Public Use
  Company Number: TPA2011A07324

PATIENT
  Age: 62 Year
  Sex: Female
  Weight: 90.72 kg

DRUGS (2)
  1. ACTOS [Suspect]
     Active Substance: PIOGLITAZONE HYDROCHLORIDE
     Indication: TYPE 2 DIABETES MELLITUS
     Dosage: PRIOR TO 29/DEC/2008 - 05/2011
     Route: 048
     Dates: start: 20081229, end: 201105
  2. METFORMIN HYDROCHLORIDE. [Concomitant]
     Active Substance: METFORMIN HYDROCHLORIDE

REACTIONS (9)
  - Alopecia [None]
  - Oedema peripheral [None]
  - Dyspnoea [None]
  - Asthenia [None]
  - Swelling face [None]
  - Decreased appetite [None]
  - Weight increased [None]
  - Cardiac failure congestive [None]
  - Myalgia [None]
